FAERS Safety Report 6752739-0 (Version None)
Quarter: 2010Q2

REPORT INFORMATION
  Report Type: 
  Country: None (occurrence: None)
  Receive Date: 20100528
  Receipt Date: 20100518
  Transmission Date: 20101027
  Serious: Yes (Death, Life-Threatening, Other)
  Sender: FDA-Public Use
  Company Number: MC201000160

PATIENT

DRUGS (3)
  1. ANGIOMAX [Suspect]
     Indication: PERCUTANEOUS CORONARY INTERVENTION
     Dosage: 0.75 MG/KG, BOLUS, INTRAVENOUS, 1.75 MG/KG, HR, INTRAVENOUS
     Route: 042
  2. ASPIRIN [Suspect]
     Indication: PERCUTANEOUS CORONARY INTERVENTION
     Dosage: 325 MG, BEFORE THE PROCEDURE
  3. CLOPIDOGREL [Suspect]
     Indication: PERCUTANEOUS CORONARY INTERVENTION
     Dosage: 300 TO 600 MG BEFORE THE PROCEDURE

REACTIONS (19)
  - CARDIAC DISORDER [None]
  - CONTUSION [None]
  - CORONARY REVASCULARISATION [None]
  - ECCHYMOSIS [None]
  - EPISTAXIS [None]
  - EYE HAEMORRHAGE [None]
  - HAEMATEMESIS [None]
  - HAEMATOMA [None]
  - HAEMATURIA [None]
  - HAEMORRHAGE [None]
  - HAEMORRHAGE INTRACRANIAL [None]
  - INCREASED TENDENCY TO BRUISE [None]
  - LACERATION [None]
  - MELAENA [None]
  - MYOCARDIAL INFARCTION [None]
  - PETECHIAE [None]
  - THERAPEUTIC RESPONSE INCREASED [None]
  - THROMBOSIS IN DEVICE [None]
  - VAGINAL HAEMORRHAGE [None]
